FAERS Safety Report 25074851 (Version 1)
Quarter: 2025Q1

REPORT INFORMATION
  Report Type: Spontaneous
  Country: ES (occurrence: ES)
  Receive Date: 20250313
  Receipt Date: 20250313
  Transmission Date: 20250409
  Serious: Yes (Life-Threatening, Hospitalization, Disabling)
  Sender: ACCORD
  Company Number: None

PATIENT
  Age: 62 Year
  Sex: Male

DRUGS (7)
  1. CARBOPLATIN [Suspect]
     Active Substance: CARBOPLATIN
     Indication: Large cell lung cancer stage IV
     Dosage: 1 CYCLE EVERY 21 DAYS
     Dates: start: 20241205
  2. PEMETREXED [Suspect]
     Active Substance: PEMETREXED
     Indication: Large cell lung cancer stage IV
     Dates: start: 20241205
  3. DURVALUMAB [Suspect]
     Active Substance: DURVALUMAB
     Indication: Large cell lung cancer stage IV
     Dates: start: 20241022, end: 20241119
  4. PEMBROLIZUMAB [Suspect]
     Active Substance: PEMBROLIZUMAB
     Indication: Large cell lung cancer stage IV
     Dates: start: 20241205
  5. ATORVASTATIN [Concomitant]
     Active Substance: ATORVASTATIN
     Dates: start: 20230314
  6. FOLIC ACID [Concomitant]
     Active Substance: FOLIC ACID
     Dates: start: 20240703
  7. CYANOCOBALAMIN [Concomitant]
     Active Substance: CYANOCOBALAMIN
     Dates: start: 20240703

REACTIONS (1)
  - Pneumonitis [Not Recovered/Not Resolved]

NARRATIVE: CASE EVENT DATE: 20250112
